FAERS Safety Report 9288546 (Version 2)
Quarter: 2013Q2

REPORT INFORMATION
  Report Type: Spontaneous
  Country: US (occurrence: US)
  Receive Date: 20130514
  Receipt Date: 20130606
  Transmission Date: 20140414
  Serious: Yes (Hospitalization)
  Sender: FDA-Public Use
  Company Number: US-VERTEX PHARMACEUTICALS INC-2013-005951

PATIENT
  Age: 54 Year
  Sex: Female
  Weight: 94 kg

DRUGS (8)
  1. INCIVEK [Suspect]
     Indication: HEPATITIS C
     Dosage: 750 MG, TID
     Route: 048
     Dates: start: 20130324
  2. PEGASYS [Suspect]
     Indication: HEPATITIS C
     Dosage: 180 ?G, QW
     Route: 058
     Dates: start: 20130324
  3. RIBAVIRIN [Suspect]
     Indication: HEPATITIS C
     Dosage: 1200 MG, QD
     Route: 048
     Dates: start: 20130324
  4. RIBAVIRIN [Suspect]
     Dosage: 600/1200 MG ON ALTERNATE DAYS
     Route: 048
     Dates: start: 20130419
  5. RIBAVIRIN [Suspect]
     Dosage: 600 MG, QD
     Route: 048
     Dates: start: 20130422
  6. RIBAVIRIN [Suspect]
     Dosage: 800 MG, QD
     Route: 048
     Dates: start: 20130507
  7. SERTRALINE [Concomitant]
     Dosage: 200 MG, QD
  8. ATIVAN [Concomitant]
     Dosage: 0.5 MG, PRN

REACTIONS (7)
  - Klebsiella sepsis [Recovered/Resolved]
  - Urinary tract infection [Unknown]
  - Pyrexia [Recovered/Resolved]
  - Rectal haemorrhage [Recovered/Resolved]
  - Haemorrhoids [Not Recovered/Not Resolved]
  - Haemoglobin decreased [Recovered/Resolved]
  - Platelet count decreased [Recovered/Resolved]
